FAERS Safety Report 7463700-5 (Version None)
Quarter: 2011Q2

REPORT INFORMATION
  Report Type: 
  Country: None (occurrence: None)
  Receive Date: 20110506
  Receipt Date: 20110502
  Transmission Date: 20111010
  Serious: Yes (Hospitalization)
  Sender: FDA-Public Use
  Company Number: FR-B.I. PHARMACEUTICALS,INC./RIDGEFIELD-2011-FF-00426FF

PATIENT
  Sex: Male
  Weight: 57 kg

DRUGS (3)
  1. PRADAXA [Suspect]
     Indication: KNEE ARTHROPLASTY
     Dosage: 220 MG
     Route: 048
     Dates: start: 20110214, end: 20110225
  2. ACETAMINOPHEN AND TRAMADOL HCL [Concomitant]
     Dosage: 4 X 37.5MG/325 MG
     Route: 048
     Dates: start: 20110221, end: 20110320
  3. NEXIUM [Concomitant]
     Dosage: 20 MG
     Route: 048
     Dates: start: 20110221, end: 20110225

REACTIONS (2)
  - DEEP VEIN THROMBOSIS [None]
  - DRUG INEFFECTIVE [None]
